FAERS Safety Report 8000020-4 (Version None)
Quarter: 2011Q4

REPORT INFORMATION
  Report Type: 
  Country: None (occurrence: None)
  Receive Date: 20111222
  Receipt Date: 20111216
  Transmission Date: 20120403
  Serious: No
  Sender: FDA-Public Use
  Company Number: US-BIOGENIDEC-2011BI047839

PATIENT
  Age: 40 Year
  Sex: Female

DRUGS (4)
  1. TYSABRI [Suspect]
     Indication: MULTIPLE SCLEROSIS
     Route: 042
  2. BENADRYL [Concomitant]
     Indication: PREMEDICATION
  3. ACETAMINOPHEN [Concomitant]
     Indication: PREMEDICATION
  4. ZANTAC [Concomitant]
     Indication: PREMEDICATION

REACTIONS (2)
  - URINARY TRACT INFECTION [None]
  - PYREXIA [None]
